FAERS Safety Report 10383319 (Version 3)
Quarter: 2014Q3

REPORT INFORMATION
  Report Type: Spontaneous
  Country: US (occurrence: US)
  Receive Date: 20140814
  Receipt Date: 20140919
  Transmission Date: 20150326
  Serious: Yes (Hospitalization, Other)
  Sender: FDA-Public Use
  Company Number: US-UCBSA-108798

PATIENT
  Sex: Female
  Weight: 136 kg

DRUGS (1)
  1. CIMZIA [Suspect]
     Active Substance: CERTOLIZUMAB PEGOL
     Indication: CROHN^S DISEASE
     Dosage: 400 MG, EV 4 WEEKS
     Route: 058
     Dates: start: 20120924, end: 2014

REACTIONS (6)
  - Suicidal ideation [Unknown]
  - Fall [Unknown]
  - Contusion [Unknown]
  - Depression [Recovering/Resolving]
  - Bipolar disorder [Unknown]
  - Cystitis [Not Recovered/Not Resolved]
